FAERS Safety Report 5218209-6 (Version None)
Quarter: 2007Q1

REPORT INFORMATION
  Report Type: 
  Country: None (occurrence: None)
  Receive Date: 20061130
  Receipt Date: 20060807
  Transmission Date: 20070707
  Serious: Yes (Other)
  Sender: FDA-Public Use
  Company Number: US_0408105086

PATIENT
  Sex: Male
  Weight: 158.7 kg

DRUGS (3)
  1. ZYPREXA [Suspect]
     Dosage: 10 MG, DAILY (1/D)
     Dates: start: 19990101, end: 20050101
  2. BUPROPION HCL [Concomitant]
  3. MIRTAZAPINE [Concomitant]

REACTIONS (9)
  - ABDOMINAL DISTENSION [None]
  - BLOOD CHOLESTEROL ABNORMAL [None]
  - BLOOD TRIGLYCERIDES INCREASED [None]
  - DIABETES MELLITUS [None]
  - HYPERTENSION [None]
  - INSOMNIA [None]
  - OBESITY [None]
  - VISION BLURRED [None]
  - WEIGHT INCREASED [None]
